FAERS Safety Report 16497824 (Version 3)
Quarter: 2019Q3

REPORT INFORMATION
  Report Type: Report from Study
  Country: BR (occurrence: BR)
  Receive Date: 20190628
  Receipt Date: 20190709
  Transmission Date: 20191004
  Serious: Yes (Other)
  Sender: FDA-Public Use
  Company Number: BR-VIIV HEALTHCARE LIMITED-BR2019GSK116351

PATIENT
  Age: 29 Year
  Sex: Female

DRUGS (3)
  1. RITONAVIR. [Suspect]
     Active Substance: RITONAVIR
     Indication: HIV INFECTION
     Dosage: 200 MG, QD
     Route: 048
     Dates: start: 20180704
  2. DARUNAVIR [Suspect]
     Active Substance: DARUNAVIR
     Indication: HIV INFECTION
     Dosage: 1200 MG, QD
     Route: 048
     Dates: start: 20170704
  3. DOLUTEGRAVIR [Suspect]
     Active Substance: DOLUTEGRAVIR
     Indication: HIV INFECTION
     Dosage: 50 MG, QD
     Route: 048
     Dates: start: 20170704

REACTIONS (3)
  - Exposure during pregnancy [Unknown]
  - Abortion spontaneous [Unknown]
  - Uterine dilation and curettage [Unknown]

NARRATIVE: CASE EVENT DATE: 20190614
